FAERS Safety Report 4591311-8 (Version None)
Quarter: 2005Q1

REPORT INFORMATION
  Report Type: 
  Country: None (occurrence: None)
  Receive Date: 20050225
  Receipt Date: 20050214
  Transmission Date: 20050727
  Serious: Yes (Other)
  Sender: FDA-Public Use
  Company Number: US-ROCHE-395654

PATIENT
  Sex: Male

DRUGS (2)
  1. PEGASYS [Suspect]
     Indication: HEPATITIS C
     Dosage: ROUTE REPORTED AS INJ.
     Route: 050
     Dates: start: 20041015, end: 20050115
  2. COPEGUS [Suspect]
     Indication: HEPATITIS C
     Route: 048
     Dates: start: 20041015, end: 20050115

REACTIONS (5)
  - AMNESIA [None]
  - DYSPNOEA [None]
  - HOMICIDAL IDEATION [None]
  - INSOMNIA [None]
  - SUICIDAL IDEATION [None]
